FAERS Safety Report 4843035-7 (Version None)
Quarter: 2005Q4

REPORT INFORMATION
  Report Type: 
  Country: None (occurrence: None)
  Receive Date: 20051130
  Receipt Date: 20051122
  Transmission Date: 20060501
  Serious: Yes (Disabling)
  Sender: FDA-Public Use
  Company Number: 2005RR-01201

PATIENT
  Age: 67 Year

DRUGS (2)
  1. CODEINE PHOSPHATE [Suspect]
     Dosage: 8 TABLETS, QD, ORAL
     Route: 048
  2. PARACETAMOL (PARACETAMOL) TABLET [Suspect]
     Dosage: 8 TABLETS, QD, ORAL
     Route: 048

REACTIONS (1)
  - DEAFNESS [None]
